FAERS Safety Report 15538747 (Version 2)
Quarter: 2019Q2

REPORT INFORMATION
  Report Type: Spontaneous
  Country: US (occurrence: US)
  Receive Date: 20181022
  Receipt Date: 20190402
  Transmission Date: 20190711
  Serious: Yes (Other)
  Sender: FDA-Public Use
  Company Number: US-SA-2018SA291000

PATIENT
  Age: 44 Year
  Sex: Female
  Weight: 82 kg

DRUGS (3)
  1. CARBOPLATIN. [Concomitant]
     Active Substance: CARBOPLATIN
  2. TAXOTERE [Suspect]
     Active Substance: DOCETAXEL
     Dosage: 160 MG, Q3W
     Route: 042
     Dates: start: 20110321, end: 20110321
  3. TAXOTERE [Suspect]
     Active Substance: DOCETAXEL
     Dosage: 160 MG, Q3W
     Route: 042
     Dates: start: 20110705, end: 20110705

REACTIONS (3)
  - Psychological trauma [Unknown]
  - Emotional distress [Unknown]
  - Alopecia [Not Recovered/Not Resolved]

NARRATIVE: CASE EVENT DATE: 2011
